FAERS Safety Report 4906021-4 (Version None)
Quarter: 2006Q1

REPORT INFORMATION
  Report Type: 
  Country: None (occurrence: None)
  Receive Date: 20060206
  Receipt Date: 20060123
  Transmission Date: 20060701
  Serious: Yes (Hospitalization, Other)
  Sender: FDA-Public Use
  Company Number: 2005099762

PATIENT
  Sex: Male
  Weight: 92.9874 kg

DRUGS (3)
  1. VIAGRA [Suspect]
     Indication: ERECTILE DYSFUNCTION
     Dosage: AS NECESSARY
     Dates: start: 20040709, end: 20050913
  2. LEVITRA [Suspect]
     Indication: ERECTILE DYSFUNCTION
  3. ASPIRIN [Concomitant]

REACTIONS (23)
  - AMAUROSIS [None]
  - AMAUROSIS FUGAX [None]
  - ANGINA PECTORIS [None]
  - ANGIOPATHY [None]
  - ARTHRALGIA [None]
  - BLINDNESS TRANSIENT [None]
  - BRAIN SCAN ABNORMAL [None]
  - CAROTID ARTERY STENOSIS [None]
  - CATARACT [None]
  - CEREBRAL ISCHAEMIA [None]
  - CHEST PAIN [None]
  - COGNITIVE DISORDER [None]
  - DIZZINESS [None]
  - DYSPNOEA [None]
  - HAEMATOCRIT DECREASED [None]
  - HEADACHE [None]
  - ISCHAEMIA [None]
  - MEMORY IMPAIRMENT [None]
  - POLLAKIURIA [None]
  - SIMILAR REACTION ON PREVIOUS EXPOSURE TO DRUG [None]
  - TRANSIENT ISCHAEMIC ATTACK [None]
  - VERTIGO [None]
  - VISUAL DISTURBANCE [None]
